FAERS Safety Report 10261497 (Version 1)
Quarter: 2014Q2

REPORT INFORMATION
  Report Type: Spontaneous
  Country: US (occurrence: US)
  Receive Date: 20140626
  Receipt Date: 20140626
  Transmission Date: 20141212
  Serious: Yes (Hospitalization)
  Sender: FDA-Public Use
  Company Number: US-BAYER-2014-093618

PATIENT
  Age: 89 Year
  Sex: Male

DRUGS (2)
  1. ACETYLSALICYLIC ACID({=100 MG) [Suspect]
  2. WARFARIN [Interacting]
     Indication: ATRIAL FIBRILLATION

REACTIONS (6)
  - Oesophageal haemorrhage [Recovered/Resolved]
  - Hypotension [Recovered/Resolved]
  - Tachycardia [Recovered/Resolved]
  - Haemoptysis [Recovered/Resolved]
  - Haemorrhagic anaemia [Recovered/Resolved]
  - Labelled drug-drug interaction medication error [None]
